FAERS Safety Report 14225325 (Version 8)
Quarter: 2021Q4

REPORT INFORMATION
  Report Type: Spontaneous
  Country: US (occurrence: US)
  Receive Date: 20171127
  Receipt Date: 20211001
  Transmission Date: 20220303
  Serious: Yes (Hospitalization, Other)
  Sender: FDA-Public Use
  Company Number: US-PFIZER INC-2017216859

PATIENT
  Age: 83 Year
  Sex: Female
  Weight: 118.8 kg

DRUGS (13)
  1. LYRICA [Suspect]
     Active Substance: PREGABALIN
     Indication: Neuropathy peripheral
     Dosage: 75 MG TWICE DAILY
     Route: 048
     Dates: start: 2014
  2. LYRICA [Suspect]
     Active Substance: PREGABALIN
     Indication: Hypoaesthesia
     Dosage: 75 MG, THRICE DAILY
     Route: 048
  3. LYRICA [Suspect]
     Active Substance: PREGABALIN
     Indication: Paraesthesia
     Dosage: 50 MG
     Route: 048
     Dates: start: 2016
  4. LYRICA [Suspect]
     Active Substance: PREGABALIN
     Indication: Burning sensation
     Dosage: 75 MG, TWICE DAILY
     Dates: start: 2016
  5. LYRICA [Suspect]
     Active Substance: PREGABALIN
     Indication: Fibromyalgia
     Dosage: 50 MG
     Dates: start: 201705
  6. LYRICA [Suspect]
     Active Substance: PREGABALIN
     Indication: Arthritis
     Dosage: 75 MG
     Dates: start: 2017
  7. LYRICA [Suspect]
     Active Substance: PREGABALIN
     Dosage: 75 MG TWICE DAILY
     Dates: start: 2017
  8. LYRICA [Suspect]
     Active Substance: PREGABALIN
     Dosage: 50 MG (UP TO 3 TIMES PER DAY TO EQUAL THE SAME DOSAGE THAT SHE TAKES NORMALLY)
     Dates: start: 2017
  9. LYRICA [Suspect]
     Active Substance: PREGABALIN
     Dosage: 75 MG TWICE IN A DAY
  10. LYRICA [Suspect]
     Active Substance: PREGABALIN
     Dosage: 75 MG TWICE DAILY
     Route: 048
  11. LYRICA [Suspect]
     Active Substance: PREGABALIN
     Dosage: 75 MG TID (THREE TIMES A DAY)
  12. TRAMADOL [Concomitant]
     Active Substance: TRAMADOL
     Indication: Pain
     Dosage: 100 MG, 2X/DAY
     Route: 048
  13. TRAMADOL [Concomitant]
     Active Substance: TRAMADOL
     Indication: Spinal stenosis
     Dosage: 50 MG, 4X/DAY (QID (FOUR TIMES A DAY) PRN (AS NEEDED))

REACTIONS (17)
  - Thrombosis [Unknown]
  - Therapeutic product effect incomplete [Unknown]
  - Weight increased [Recovered/Resolved]
  - Limb discomfort [Recovered/Resolved]
  - Eye disorder [Not Recovered/Not Resolved]
  - Vision blurred [Not Recovered/Not Resolved]
  - Weight decreased [Unknown]
  - Herpes zoster [Unknown]
  - Peripheral swelling [Unknown]
  - Pruritus [Not Recovered/Not Resolved]
  - Insomnia [Unknown]
  - Fatigue [Unknown]
  - Facial pain [Unknown]
  - Mood altered [Unknown]
  - Back pain [Unknown]
  - Gait disturbance [Unknown]
  - Lumbar spinal stenosis [Unknown]

NARRATIVE: CASE EVENT DATE: 20150101
